FAERS Safety Report 6644082-5 (Version None)
Quarter: 2010Q1

REPORT INFORMATION
  Report Type: 
  Country: None (occurrence: None)
  Receive Date: 20100322
  Receipt Date: 20041208
  Transmission Date: 20100710
  Serious: Yes (Life-Threatening, Hospitalization, Other)
  Sender: FDA-Public Use
  Company Number: JP-PFIZER INC-2004106601

PATIENT
  Age: 75 Year
  Sex: Female
  Weight: 64.4 kg

DRUGS (13)
  1. CORTRIL [Suspect]
     Indication: ADDISON'S DISEASE
     Route: 048
     Dates: start: 19980101
  2. DRUG USED IN DIABETES [Concomitant]
     Route: 048
     Dates: start: 20030101
  3. AMLODIPINE BESYLATE [Concomitant]
     Route: 048
  4. MENATETRENONE [Concomitant]
     Route: 048
  5. MARZULENE S [Concomitant]
     Route: 048
  6. ENALAPRIL MALEATE [Concomitant]
     Route: 048
  7. HAPSTAR [Concomitant]
     Route: 062
  8. NITROGLYCERIN [Concomitant]
     Route: 062
  9. GLIBENCLAMIDE [Concomitant]
     Route: 048
  10. SENNA LEAF [Concomitant]
     Route: 048
  11. MELOXICAM [Concomitant]
     Route: 048
  12. REBAMIPIDE [Concomitant]
     Route: 048
  13. KETOPROFEN [Concomitant]
     Route: 062

REACTIONS (10)
  - ARTERIOSCLEROSIS [None]
  - ASCITES [None]
  - BILIARY TRACT DISORDER [None]
  - CHOLELITHIASIS [None]
  - DIABETES MELLITUS [None]
  - GALLBLADDER PERFORATION [None]
  - PANCREATIC DUCT OBSTRUCTION [None]
  - PANCREATITIS [None]
  - PERITONEAL DISORDER [None]
  - PERITONITIS [None]
